FAERS Safety Report 22528802 (Version 1)
Quarter: 2023Q2

REPORT INFORMATION
  Report Type: Spontaneous
  Country: US (occurrence: US)
  Receive Date: 20230607
  Receipt Date: 20230607
  Transmission Date: 20230722
  Serious: No
  Sender: FDA-Public Use
  Company Number: US-ELI_LILLY_AND_COMPANY-US202305018026

PATIENT
  Sex: Female

DRUGS (17)
  1. INSULIN LISPRO [Suspect]
     Active Substance: INSULIN LISPRO
     Indication: Diabetes mellitus
     Dosage: 12 U, OTHER (EACH MEAL)
     Route: 058
     Dates: start: 2005
  2. INSULIN LISPRO [Suspect]
     Active Substance: INSULIN LISPRO
     Dosage: 12 U, OTHER (EACH MEAL)
     Route: 058
  3. INSULIN LISPRO [Suspect]
     Active Substance: INSULIN LISPRO
     Dosage: 12 U, OTHER (EACH MEAL)
     Route: 058
  4. INSULIN LISPRO [Suspect]
     Active Substance: INSULIN LISPRO
     Dosage: 12 U, OTHER (EACH MEAL)
     Route: 058
  5. INSULIN LISPRO [Suspect]
     Active Substance: INSULIN LISPRO
     Dosage: 12 U, OTHER (EACH MEAL)
     Route: 058
  6. INSULIN LISPRO [Suspect]
     Active Substance: INSULIN LISPRO
     Dosage: 12 U, OTHER (EACH MEAL)
     Route: 058
  7. INSULIN LISPRO [Suspect]
     Active Substance: INSULIN LISPRO
     Dosage: 12 U, OTHER (EACH MEAL)
     Route: 058
  8. INSULIN LISPRO [Suspect]
     Active Substance: INSULIN LISPRO
     Dosage: 12 U, OTHER (EACH MEAL)
     Route: 058
  9. INSULIN LISPRO [Suspect]
     Active Substance: INSULIN LISPRO
     Dosage: 12 U, OTHER (EACH MEAL)
     Route: 058
  10. INSULIN LISPRO [Suspect]
     Active Substance: INSULIN LISPRO
     Dosage: 12 U, OTHER (EACH MEAL)
     Route: 058
  11. INSULIN LISPRO [Suspect]
     Active Substance: INSULIN LISPRO
     Dosage: 5 U, OTHER (WITH SNACKS)
     Route: 058
     Dates: start: 2005
  12. INSULIN LISPRO [Suspect]
     Active Substance: INSULIN LISPRO
     Dosage: 5 U, OTHER (WITH SNACKS)
     Route: 058
  13. BASAGLAR [Suspect]
     Active Substance: INSULIN GLARGINE
     Indication: Diabetes mellitus
     Dosage: 46 U, EACH MORNING
     Route: 058
     Dates: start: 2005
  14. BASAGLAR [Suspect]
     Active Substance: INSULIN GLARGINE
     Dosage: 46 U, EACH MORNING
     Route: 058
  15. BASAGLAR [Suspect]
     Active Substance: INSULIN GLARGINE
     Dosage: 46 U, EACH MORNING
     Route: 058
  16. BASAGLAR [Suspect]
     Active Substance: INSULIN GLARGINE
     Dosage: 46 U, EACH MORNING
     Route: 058
  17. BASAGLAR [Suspect]
     Active Substance: INSULIN GLARGINE
     Dosage: 46 U, EACH MORNING
     Route: 058

REACTIONS (6)
  - Visual impairment [Unknown]
  - Injury associated with device [Unknown]
  - Accidental exposure to product [Unknown]
  - Incorrect product administration duration [Unknown]
  - Expired product administered [Unknown]
  - Product storage error [Unknown]
